FAERS Safety Report 5423101-8 (Version None)
Quarter: 2007Q3

REPORT INFORMATION
  Report Type: 
  Country: None (occurrence: None)
  Receive Date: 20070821
  Receipt Date: 20070807
  Transmission Date: 20080115
  Serious: Yes (Death, Hospitalization)
  Sender: FDA-Public Use
  Company Number: 2007RR-05085

PATIENT
  Age: 87 Year
  Sex: Female

DRUGS (6)
  1. AMOXICILLIN + CLAVULANATE POTASSIUM [Suspect]
     Indication: INFECTION
  2. TAMOXIFENE BIOGALENIQUE 20 MG COMPRIME (TAMOXIFEN) UNKNOWN [Suspect]
     Indication: BREAST CANCER
  3. ATENOLOL [Concomitant]
  4. BENDROFLUMETHIAZIDE (BENDROFLUMETHIAZIDE) [Concomitant]
  5. MELOXICAM [Concomitant]
  6. PREDNISOLONE [Concomitant]

REACTIONS (3)
  - CUTANEOUS VASCULITIS [None]
  - LEUKOCYTOCLASTIC VASCULITIS [None]
  - RENAL FAILURE [None]
